FAERS Safety Report 7226215-5 (Version None)
Quarter: 2011Q1

REPORT INFORMATION
  Report Type: 
  Country: None (occurrence: None)
  Receive Date: 20110114
  Receipt Date: 20110103
  Transmission Date: 20110831
  Serious: Yes (Other)
  Sender: FDA-Public Use
  Company Number: PHHY2010CA77867

PATIENT
  Sex: Male

DRUGS (3)
  1. LOPRESSOR [Suspect]
     Indication: HYPERTENSION
     Dosage: 25 MG, BID
     Route: 048
     Dates: start: 20070101
  2. DIOVAN [Suspect]
     Dosage: 125 MG, UNK
     Route: 048
  3. DIOVAN [Suspect]
     Indication: HYPERTENSION
     Dosage: 160 MG, UNK
     Route: 048
     Dates: start: 20070101

REACTIONS (6)
  - NODULE [None]
  - CHEILITIS [None]
  - LIP SWELLING [None]
  - LIP PAIN [None]
  - LIP DISORDER [None]
  - RASH [None]
